FAERS Safety Report 9816128 (Version 1)
Quarter: 2014Q1

REPORT INFORMATION
  Report Type: Report from Study
  Country: CA (occurrence: CA)
  Receive Date: 20140114
  Receipt Date: 20140114
  Transmission Date: 20141002
  Serious: Yes (Hospitalization)
  Sender: FDA-Public Use
  Company Number: CA-JNJFOC-20140102241

PATIENT
  Age: 65 Year
  Sex: Female
  Weight: 81.65 kg

DRUGS (7)
  1. REMICADE [Suspect]
     Indication: RHEUMATOID ARTHRITIS
     Route: 042
     Dates: start: 200701
  2. MELOXICAM [Concomitant]
     Route: 065
  3. AMITRIPTYLINE [Concomitant]
     Route: 065
  4. METHOTREXATE [Concomitant]
     Indication: ARTHRITIS
     Route: 065
  5. ADALAT [Concomitant]
     Route: 065
  6. ROSUVASTATIN [Concomitant]
     Route: 065
  7. CALCIUM [Concomitant]
     Route: 065

REACTIONS (1)
  - Cerebrovascular accident [Recovering/Resolving]
